FAERS Safety Report 8381329-1 (Version None)
Quarter: 2012Q2

REPORT INFORMATION
  Report Type: 
  Country: None (occurrence: None)
  Receive Date: 20120523
  Receipt Date: 20120517
  Transmission Date: 20120825
  Serious: Yes (Hospitalization, Other)
  Sender: FDA-Public Use
  Company Number: US-PFIZER INC-2012111350

PATIENT
  Sex: Female
  Weight: 77 kg

DRUGS (9)
  1. DILANTIN [Suspect]
     Dosage: 200 MG, 2X/DAY
     Route: 048
  2. LIPITOR [Concomitant]
     Dosage: UNK
  3. LIPITOR [Concomitant]
     Dosage: UNK, 1X/DAY
  4. DILANTIN [Suspect]
     Indication: CONVULSION
     Dosage: 500 MG, DAILY
     Route: 048
  5. PHENYTOIN [Suspect]
     Indication: CONVULSION
     Dosage: 500 MG, UNK
  6. PHENYTOIN [Suspect]
     Dosage: 400 MG, UNK
  7. NORVASC [Concomitant]
     Dosage: UNK
  8. ASPIRIN [Concomitant]
     Dosage: UNK, 1X/DAY
  9. DILANTIN [Suspect]
     Dosage: UNK

REACTIONS (8)
  - DIABETES MELLITUS [None]
  - CONVULSION [None]
  - THROMBOSIS [None]
  - DIVERTICULUM [None]
  - PHLEBITIS [None]
  - MYOCARDIAL INFARCTION [None]
  - BREAST CANCER [None]
  - DEEP VEIN THROMBOSIS [None]
